FAERS Safety Report 25609559 (Version 2)
Quarter: 2025Q3

REPORT INFORMATION
  Report Type: Report from Study
  Country: AU (occurrence: AU)
  Receive Date: 20250728
  Receipt Date: 20250730
  Transmission Date: 20251021
  Serious: Yes (Other)
  Sender: TAKEDA
  Company Number: AU-TAKEDA-2025TUS065097

PATIENT
  Age: 53 Year
  Sex: Female

DRUGS (1)
  1. HUMAN IMMUNOGLOBULIN G [Suspect]
     Active Substance: HUMAN IMMUNOGLOBULIN G
     Indication: Product used for unknown indication
     Dosage: 8 GRAM, 1/WEEK
     Dates: start: 20250611

REACTIONS (13)
  - Lower respiratory tract infection [Recovering/Resolving]
  - Mobility decreased [Recovered/Resolved]
  - Bone pain [Recovered/Resolved]
  - Myalgia [Recovered/Resolved]
  - Infusion site erythema [Recovered/Resolved]
  - Infusion site swelling [Recovered/Resolved]
  - Infusion site urticaria [Recovered/Resolved]
  - Abdominal pain [Unknown]
  - Endometriosis [Unknown]
  - Gastroenteritis viral [Recovering/Resolving]
  - Hormone level abnormal [Unknown]
  - Sinusitis [Recovering/Resolving]
  - Back pain [Recovered/Resolved]

NARRATIVE: CASE EVENT DATE: 20250601
